FAERS Safety Report 5621091-6 (Version None)
Quarter: 2008Q1

REPORT INFORMATION
  Report Type: 
  Country: None (occurrence: None)
  Receive Date: 20080114
  Receipt Date: 20070110
  Transmission Date: 20080703
  Serious: Yes (Other)
  Sender: FDA-Public Use
  Company Number: A03200700352

PATIENT
  Age: 77 Year
  Sex: Male

DRUGS (17)
  1. PLAVIX [Suspect]
     Indication: STENT PLACEMENT
     Dosage: 75 MG QD - ORAL
     Route: 048
     Dates: start: 20000101, end: 20000101
  2. PLAVIX [Suspect]
     Indication: STENT PLACEMENT
     Dosage: 75 MG QD - ORAL
     Route: 048
     Dates: start: 20000101
  3. ACETYLSALICYLIC ACID SRT [Concomitant]
  4. OMEPRAZOLE [Concomitant]
  5. SERTRALINE HYDROCHLORIDE [Concomitant]
  6. SERTRALINE HYDROCHLORIDE [Concomitant]
  7. LOSARTAN POTASSIUM [Concomitant]
  8. ALPRAZOLAM [Concomitant]
  9. HYDROCHLOROTHIAZIDE [Concomitant]
  10. ADVAIR DISKUS 100/50 [Concomitant]
  11. ALBUTEROL [Concomitant]
  12. IPRATOPIUM BROMIDE [Concomitant]
  13. DUTASTERIDE [Concomitant]
  14. THEOPHYLLINE [Concomitant]
  15. GUAIFENESIN [Concomitant]
  16. ASCORBIC ACID [Concomitant]
  17. CALCIUM CARBONATE [Concomitant]

REACTIONS (4)
  - ARTERIOSCLEROSIS [None]
  - PAIN IN EXTREMITY [None]
  - PARAESTHESIA [None]
  - PULSE ABSENT [None]
